FAERS Safety Report 11681527 (Version 1)
Quarter: 2015Q4

REPORT INFORMATION
  Report Type: Report from Study
  Country: US (occurrence: US)
  Receive Date: 20151029
  Receipt Date: 20151029
  Transmission Date: 20160304
  Serious: No
  Sender: FDA-Public Use
  Company Number: PHEH2015US021764

PATIENT
  Age: 21 Year
  Sex: Male

DRUGS (1)
  1. COSENTYX [Suspect]
     Active Substance: SECUKINUMAB
     Indication: PSORIASIS
     Dosage: 300 MG, QW FOR FIVE DOSES FOLLOWED BY QMO
     Route: 058
     Dates: start: 20150516

REACTIONS (1)
  - Pharyngitis streptococcal [Unknown]

NARRATIVE: CASE EVENT DATE: 20151020
